FAERS Safety Report 5968946-0 (Version None)
Quarter: 2008Q4

REPORT INFORMATION
  Report Type: 
  Country: None (occurrence: None)
  Receive Date: 20081126
  Receipt Date: 20081121
  Transmission Date: 20090506
  Serious: Yes (Other)
  Sender: FDA-Public Use
  Company Number: ZM-GILEAD-2008-0019157

PATIENT
  Age: 27 Year
  Sex: Female
  Weight: 59 kg

DRUGS (9)
  1. TRUVADA [Suspect]
     Indication: HIV INFECTION
     Route: 048
     Dates: start: 20061214, end: 20080507
  2. EMTRIVA [Suspect]
     Indication: HIV INFECTION
     Route: 048
     Dates: start: 20080507
  3. KALETRA [Suspect]
     Indication: HIV INFECTION
     Dates: start: 20061214
  4. ZIDOVUDINE [Suspect]
     Indication: HIV INFECTION
     Route: 048
     Dates: start: 20080507, end: 20081020
  5. NORISTERAT [Concomitant]
     Indication: CONTRACEPTION
     Dates: start: 20080114, end: 20080314
  6. DEPO-PROVERA [Concomitant]
     Indication: CONTRACEPTION
     Dates: start: 20070928, end: 20080114
  7. MULTI-VITAMIN [Concomitant]
  8. BACTRIM [Concomitant]
  9. FANSIDAR [Concomitant]
     Indication: MALARIA PROPHYLAXIS

REACTIONS (1)
  - INTRA-UTERINE DEATH [None]
